FAERS Safety Report 24983944 (Version 1)
Quarter: 2025Q1

REPORT INFORMATION
  Report Type: Spontaneous
  Country: US (occurrence: US)
  Receive Date: 20250219
  Receipt Date: 20250219
  Transmission Date: 20250408
  Serious: Yes (Other)
  Sender: OTSUKA
  Company Number: US-OTSUKA-2024_016426

PATIENT
  Age: 4 Year
  Sex: Female

DRUGS (12)
  1. BUSULFAN [Suspect]
     Active Substance: BUSULFAN
     Indication: Acute myeloid leukaemia
     Route: 065
  2. BUSULFAN [Suspect]
     Active Substance: BUSULFAN
     Indication: Acute promyelocytic leukaemia
  3. BUSULFAN [Suspect]
     Active Substance: BUSULFAN
     Indication: Stem cell transplant
  4. BUSULFAN [Suspect]
     Active Substance: BUSULFAN
     Indication: Bone marrow conditioning regimen
  5. FLUDARABINE [Suspect]
     Active Substance: FLUDARABINE PHOSPHATE
     Indication: Acute myeloid leukaemia
     Route: 065
  6. FLUDARABINE [Suspect]
     Active Substance: FLUDARABINE PHOSPHATE
     Indication: Acute promyelocytic leukaemia
  7. FLUDARABINE [Suspect]
     Active Substance: FLUDARABINE PHOSPHATE
     Indication: Stem cell transplant
  8. FLUDARABINE [Suspect]
     Active Substance: FLUDARABINE PHOSPHATE
     Indication: Bone marrow conditioning regimen
  9. CLOFARABINE [Suspect]
     Active Substance: CLOFARABINE
     Indication: Acute myeloid leukaemia
     Route: 065
  10. CLOFARABINE [Suspect]
     Active Substance: CLOFARABINE
     Indication: Acute promyelocytic leukaemia
  11. CLOFARABINE [Suspect]
     Active Substance: CLOFARABINE
     Indication: Stem cell transplant
  12. CLOFARABINE [Suspect]
     Active Substance: CLOFARABINE
     Indication: Bone marrow conditioning regimen

REACTIONS (4)
  - Human herpesvirus 6 viraemia [Unknown]
  - Clostridium difficile infection [Unknown]
  - Mucosal inflammation [Unknown]
  - Drug effective for unapproved indication [Unknown]
